FAERS Safety Report 8787299 (Version 1)
Quarter: 2012Q4

REPORT INFORMATION
  Report Type: Report from Study
  Country: US (occurrence: US)
  Receive Date: 20120914
  Receipt Date: 20120914
  Transmission Date: 20130627
  Serious: No
  Sender: FDA-Public Use
  Company Number: US-VERTEX PHARMACEUTICAL INC.-AE-2012-009887

PATIENT
  Age: 56 Year
  Sex: Female
  Weight: 70.46 kg

DRUGS (7)
  1. INCIVEK [Suspect]
     Indication: HEPATITIS C
     Route: 048
  2. OXYCODONE [Concomitant]
  3. VITAMIN D-3 [Concomitant]
  4. TYLENOL [Concomitant]
  5. MULTI-VITAMIN [Concomitant]
  6. PROBIOTIC [Concomitant]
  7. TRAMADOL HCL [Concomitant]

REACTIONS (5)
  - Headache [Unknown]
  - Fatigue [Unknown]
  - Nausea [Unknown]
  - Vomiting [Unknown]
  - Dysgeusia [Unknown]
